FAERS Safety Report 14250582 (Version 1)
Quarter: 2017Q4

REPORT INFORMATION
  Report Type: Spontaneous
  Country: US (occurrence: US)
  Receive Date: 20171205
  Receipt Date: 20171205
  Transmission Date: 20180321
  Serious: Yes (Hospitalization)
  Sender: FDA-Public Use
  Company Number: None

PATIENT
  Age: 68 Year
  Sex: Female
  Weight: 81 kg

DRUGS (2)
  1. BACLOFEN. [Suspect]
     Active Substance: BACLOFEN
     Indication: PAIN IN EXTREMITY
     Route: 048
     Dates: start: 20171110, end: 20171110
  2. TRAMADOL. [Concomitant]
     Active Substance: TRAMADOL

REACTIONS (6)
  - Depressed level of consciousness [None]
  - Pupillary reflex impaired [None]
  - Transcription medication error [None]
  - Oxygen saturation decreased [None]
  - Toxicity to various agents [None]
  - Drug dispensing error [None]

NARRATIVE: CASE EVENT DATE: 20171110
